FAERS Safety Report 5323641-6 (Version None)
Quarter: 2007Q2

REPORT INFORMATION
  Report Type: 
  Country: None (occurrence: None)
  Receive Date: 20070514
  Receipt Date: 20070509
  Transmission Date: 20071010
  Serious: Yes (Life-Threatening)
  Sender: FDA-Public Use
  Company Number: FR-BRISTOL-MYERS SQUIBB COMPANY-13775481

PATIENT
  Age: 62 Year
  Sex: Female

DRUGS (1)
  1. COUMADIN [Suspect]
     Route: 048

REACTIONS (2)
  - BRADYCARDIA [None]
  - SUBDURAL HAEMATOMA [None]
